FAERS Safety Report 8817511 (Version 1)
Quarter: 2012Q4

REPORT INFORMATION
  Report Type: 
  Country: NO (occurrence: NO)
  Receive Date: 20121004
  Receipt Date: 20121004
  Transmission Date: 20130627
  Serious: Yes (Hospitalization, Other)
  Sender: FDA-Public Use
  Company Number: NO-BAXTER-2012BAX018745

PATIENT
  Sex: Female

DRUGS (7)
  1. CYCLOPHOSPHAMIDE [Suspect]
     Indication: WEGENER^S GRANULOMATOSIS
     Route: 042
  2. RITUXIMAB [Suspect]
     Indication: WEGENER^S GRANULOMATOSIS
     Route: 065
  3. RITUXIMAB [Suspect]
     Route: 065
     Dates: start: 2008
  4. RITUXIMAB [Suspect]
     Route: 065
  5. RITUXIMAB [Suspect]
  6. PREDNISOLONE [Suspect]
     Indication: WEGENER^S GRANULOMATOSIS
     Route: 065
     Dates: start: 2008
  7. MYCOPHENOLATE MOFETIL [Concomitant]
     Indication: WEGENER^S GRANULOMATOSIS
     Route: 065

REACTIONS (2)
  - Hypogammaglobulinaemia [Recovering/Resolving]
  - Infection [Unknown]
